FAERS Safety Report 5836061-2 (Version None)
Quarter: 2008Q3

REPORT INFORMATION
  Report Type: 
  Country: None (occurrence: None)
  Receive Date: 20080806
  Receipt Date: 20080728
  Transmission Date: 20090109
  Serious: Yes (Other)
  Sender: FDA-Public Use
  Company Number: JP-PFIZER INC-2008063684

PATIENT
  Age: 67 Year
  Sex: Female

DRUGS (1)
  1. CHANTIX [Suspect]
     Route: 048
     Dates: start: 20080717, end: 20080701

REACTIONS (2)
  - HEADACHE [None]
  - PNEUMONIA [None]
